FAERS Safety Report 4278082-X (Version None)
Quarter: 2004Q1

REPORT INFORMATION
  Report Type: 
  Country: None (occurrence: None)
  Receive Date: 20040121
  Receipt Date: 20040106
  Transmission Date: 20041129
  Serious: Yes (Hospitalization)
  Sender: FDA-Public Use
  Company Number: USA040155708

PATIENT
  Age: 84 Year
  Sex: Female

DRUGS (2)
  1. FORTEO [Suspect]
     Indication: OSTEOPOROSIS
     Dates: start: 20031101
  2. XANAX [Concomitant]

REACTIONS (4)
  - COMPRESSION FRACTURE [None]
  - MICTURITION DISORDER [None]
  - PHARMACEUTICAL PRODUCT COMPLAINT [None]
  - RESIDUAL URINE VOLUME [None]
